FAERS Safety Report 10596120 (Version 3)
Quarter: 2015Q1

REPORT INFORMATION
  Report Type: Report from Study
  Country: DE (occurrence: DE)
  Receive Date: 20141120
  Receipt Date: 20150106
  Transmission Date: 20150720
  Serious: Yes (Death, Hospitalization)
  Sender: FDA-Public Use
  Company Number: DE-INCYTE CORPORATION-2014IN003481

PATIENT
  Sex: Male
  Weight: 83 kg

DRUGS (18)
  1. BELOC-ZOC MITE [Concomitant]
     Active Substance: METOPROLOL SUCCINATE
     Dosage: 47.5 MG, BID
     Route: 065
  2. ACETYLSALICYLIC ACID [Concomitant]
     Active Substance: ASPIRIN
     Dosage: 100 MG, QD
     Route: 065
  3. INCB018424 [Suspect]
     Active Substance: RUXOLITINIB
     Dosage: 2 DF, QD (1X15 MG+1X5 MG)
     Route: 048
     Dates: start: 20130404, end: 20130502
  4. PEPDUL [Concomitant]
     Indication: PRODUCT USED FOR UNKNOWN INDICATION
     Dosage: UNK
     Route: 065
  5. PEPDUL [Concomitant]
     Dosage: 40 MG, QD
     Route: 065
  6. MAGNESIUM VERLA                    /00648601/ [Concomitant]
     Active Substance: MAGNESIUM
     Indication: PRODUCT USED FOR UNKNOWN INDICATION
     Dosage: UNK
     Route: 065
  7. L-THYROXIN [Concomitant]
     Active Substance: LEVOTHYROXINE SODIUM
     Dosage: 100 UG, QD
     Route: 065
  8. OPSUMIT [Concomitant]
     Active Substance: MACITENTAN
     Indication: PRODUCT USED FOR UNKNOWN INDICATION
     Dosage: UNK
     Route: 065
  9. INCB018424 [Suspect]
     Active Substance: RUXOLITINIB
     Indication: MYELOFIBROSIS
     Dosage: 2 DF, QD (15 MG)
     Route: 048
     Dates: start: 20121015
  10. INCB018424 [Suspect]
     Active Substance: RUXOLITINIB
     Dosage: 2 DF, QD (15 MG PER DAY)
     Route: 048
     Dates: start: 20140710, end: 20141016
  11. ENAHEXAL [Concomitant]
     Active Substance: ENALAPRIL MALEATE
     Dosage: 2.5 MG, BID
     Route: 065
  12. OPSUMIT [Concomitant]
     Active Substance: MACITENTAN
     Dosage: 10 MG, QD
     Route: 065
  13. ENAHEXAL [Concomitant]
     Active Substance: ENALAPRIL MALEATE
     Indication: PRODUCT USED FOR UNKNOWN INDICATION
     Dosage: UNK
     Route: 065
  14. BELOC-ZOC MITE [Concomitant]
     Active Substance: METOPROLOL SUCCINATE
     Indication: PRODUCT USED FOR UNKNOWN INDICATION
     Dosage: UNK
     Route: 065
  15. L-THYROXIN [Concomitant]
     Active Substance: LEVOTHYROXINE SODIUM
     Indication: PRODUCT USED FOR UNKNOWN INDICATION
     Dosage: UNK
     Route: 065
  16. INCB018424 [Suspect]
     Active Substance: RUXOLITINIB
     Dosage: 1 DF, QD (1X20 MG+1X5 MG)
     Route: 048
     Dates: start: 20130502, end: 20141001
  17. MAGNESIUM VERLA                    /00648601/ [Concomitant]
     Active Substance: MAGNESIUM
     Dosage: 2 DF, TID
     Route: 065
  18. ACETYLSALICYLIC ACID [Concomitant]
     Active Substance: ASPIRIN
     Indication: PRODUCT USED FOR UNKNOWN INDICATION
     Dosage: UNK
     Route: 065

REACTIONS (15)
  - Renal failure [None]
  - Acute abdomen [Recovering/Resolving]
  - Cardiac failure [Recovering/Resolving]
  - Large intestine perforation [None]
  - Metabolic acidosis [None]
  - Multi-organ failure [Fatal]
  - Haematemesis [Recovered/Resolved]
  - Hepatic function abnormal [Recovering/Resolving]
  - Hyperthermia malignant [Fatal]
  - Haemorrhagic anaemia [Not Recovered/Not Resolved]
  - Joint swelling [Unknown]
  - Enterococcal infection [None]
  - Sepsis [Fatal]
  - Aortic valve stenosis [Recovered/Resolved]
  - Tricuspid valve incompetence [Recovered/Resolved]

NARRATIVE: CASE EVENT DATE: 20140815
